FAERS Safety Report 7791055-5 (Version None)
Quarter: 2011Q4

REPORT INFORMATION
  Report Type: 
  Country: None (occurrence: None)
  Receive Date: 20111003
  Receipt Date: 20110923
  Transmission Date: 20120403
  Serious: Yes (Hospitalization)
  Sender: FDA-Public Use
  Company Number: US-BIOGENIDEC-2011BI033786

PATIENT
  Age: 56 Year
  Sex: Female

DRUGS (2)
  1. AVONEX [Suspect]
     Route: 030
     Dates: start: 20110801, end: 20110822
  2. AVONEX [Suspect]
     Indication: MULTIPLE SCLEROSIS
     Route: 030
     Dates: start: 20000101, end: 20090831

REACTIONS (4)
  - PLATELET COUNT DECREASED [None]
  - HERPES ZOSTER DISSEMINATED [None]
  - HEPATIC ENZYME INCREASED [None]
  - ADVERSE DRUG REACTION [None]
